FAERS Safety Report 22608658 (Version 1)
Quarter: 2023Q2

REPORT INFORMATION
  Report Type: Spontaneous
  Country: CA (occurrence: CA)
  Receive Date: 20230616
  Receipt Date: 20230616
  Transmission Date: 20230721
  Serious: Yes (Other)
  Sender: FDA-Public Use
  Company Number: CA-BAXTER-2023BAX023802

PATIENT
  Sex: Male

DRUGS (1)
  1. EXTRANEAL [Suspect]
     Active Substance: CALCIUM CHLORIDE\ICODEXTRIN\MAGNESIUM CHLORIDE\SODIUM CHLORIDE\SODIUM LACTATE
     Dosage: 2 BAGS IN A DAY
     Route: 033

REACTIONS (5)
  - Sepsis [Unknown]
  - Cellulitis [Unknown]
  - Peritonitis [Unknown]
  - Foot deformity [Unknown]
  - Pain [Unknown]

NARRATIVE: CASE EVENT DATE: 20230505
